FAERS Safety Report 5636316-0 (Version None)
Quarter: 2008Q1

REPORT INFORMATION
  Report Type: 
  Country: None (occurrence: None)
  Receive Date: 20080225
  Receipt Date: 20080225
  Transmission Date: 20080703
  Serious: Yes (Life-Threatening)
  Sender: FDA-Public Use
  Company Number: None

PATIENT
  Sex: Female
  Weight: 65.7716 kg

DRUGS (1)
  1. HEPARIN [Suspect]
     Indication: CHEST PAIN
     Dosage: 5000 UNITS ONCE IV BOLUS; 1 DOSE
     Route: 040
     Dates: start: 20080221, end: 20080221

REACTIONS (2)
  - BLOOD PRESSURE DECREASED [None]
  - HEART RATE DECREASED [None]
